FAERS Safety Report 14608311 (Version 1)
Quarter: 2018Q1

REPORT INFORMATION
  Report Type: Spontaneous
  Country: CN (occurrence: CN)
  Receive Date: 20180307
  Receipt Date: 20180307
  Transmission Date: 20180509
  Serious: Yes (Other)
  Sender: FDA-Public Use
  Company Number: CN-PFIZER INC-2018092161

PATIENT
  Age: 66 Year
  Sex: Female
  Weight: 54 kg

DRUGS (2)
  1. CYTOSAR [Suspect]
     Active Substance: CYTARABINE
     Indication: NEOPLASM
     Dosage: 0.15 G, 1X/DAY
     Route: 041
     Dates: start: 20171220, end: 20171224
  2. ZAVEDOS [Suspect]
     Active Substance: IDARUBICIN
     Indication: NEOPLASM
     Dosage: 10 MG, 1X/DAY
     Route: 041
     Dates: start: 20171220, end: 20171222

REACTIONS (2)
  - Agranulocytosis [Recovering/Resolving]
  - Bone marrow failure [Recovering/Resolving]

NARRATIVE: CASE EVENT DATE: 20171230
